FAERS Safety Report 7854263-0 (Version None)
Quarter: 2011Q4

REPORT INFORMATION
  Report Type: 
  Country: None (occurrence: None)
  Receive Date: 20111026
  Receipt Date: 20111017
  Transmission Date: 20120403
  Serious: Yes (Hospitalization, Other)
  Sender: FDA-Public Use
  Company Number: US-ASTRAZENECA-2011SE15304

PATIENT
  Age: 59 Year
  Sex: Female

DRUGS (11)
  1. FUROSEMIDE [Concomitant]
  2. OXYCODONE HCL [Concomitant]
  3. UNSPECIFIED SUSPECT DRUG [Suspect]
     Route: 065
  4. LANTUS [Concomitant]
  5. PROZAC [Concomitant]
  6. WATER PILL [Concomitant]
  7. TOPROL-XL [Suspect]
     Route: 048
  8. LIDOCAINE [Concomitant]
  9. POTASSIUM [Concomitant]
  10. 20 OTHER MEDICATIONS [Concomitant]
  11. VARIOUS VITAMINS [Concomitant]

REACTIONS (17)
  - GRIP STRENGTH DECREASED [None]
  - PLEURITIC PAIN [None]
  - ARTHRITIS [None]
  - SKIN CANCER [None]
  - CYST [None]
  - MENISCUS LESION [None]
  - NERVE INJURY [None]
  - INTERVERTEBRAL DISC PROTRUSION [None]
  - PAIN [None]
  - BRONCHOPNEUMONIA [None]
  - ASTHENIA [None]
  - DIABETES MELLITUS INADEQUATE CONTROL [None]
  - HYPERPHAGIA [None]
  - RASH MACULAR [None]
  - DRUG INEFFECTIVE [None]
  - FIBROMYALGIA [None]
  - WEIGHT DECREASED [None]
